FAERS Safety Report 4604087-2 (Version None)
Quarter: 2005Q1

REPORT INFORMATION
  Report Type: 
  Country: None (occurrence: None)
  Receive Date: 20050309
  Receipt Date: 20050309
  Transmission Date: 20050727
  Serious: No
  Sender: FDA-Public Use
  Company Number: None

PATIENT
  Age: 15 Year
  Sex: Female
  Weight: 50.8029 kg

DRUGS (3)
  1. ZOLOFT [Suspect]
     Indication: DEPRESSION
     Dosage: 1 TABLET   DAILY   ORAL
     Route: 048
     Dates: start: 20050303, end: 20050308
  2. ADVAIR DISKUS 100/50 [Concomitant]
  3. PROVENTIL [Concomitant]

REACTIONS (4)
  - ANXIETY [None]
  - DRUG INEFFECTIVE [None]
  - MUSCLE SPASMS [None]
  - RESTLESSNESS [None]
